FAERS Safety Report 6327227-6 (Version None)
Quarter: 2009Q3

REPORT INFORMATION
  Report Type: 
  Country: None (occurrence: None)
  Receive Date: 20090818
  Receipt Date: 20090504
  Transmission Date: 20100115
  Serious: No
  Sender: FDA-Public Use
  Company Number: WAES 0905USA00349

PATIENT
  Age: 72 Year
  Sex: Male

DRUGS (6)
  1. JANUVIA [Suspect]
     Indication: DIABETES MELLITUS
     Dosage: 100MG/DAILY/PO
     Route: 048
     Dates: start: 20090428
  2. COZAAR [Concomitant]
  3. DEMADEX [Concomitant]
  4. NORVASC [Concomitant]
  5. ZETIA [Concomitant]
  6. ATENOLOL [Concomitant]

REACTIONS (3)
  - BLOOD GLUCOSE INCREASED [None]
  - DIZZINESS [None]
  - FEELING DRUNK [None]
